FAERS Safety Report 23803374 (Version 2)
Quarter: 2024Q2

REPORT INFORMATION
  Report Type: Report from Study
  Country: AR (occurrence: AR)
  Receive Date: 20240501
  Receipt Date: 20240510
  Transmission Date: 20240715
  Serious: Yes (Other)
  Sender: FDA-Public Use
  Company Number: AR-002147023-NVSC2023AR211432

PATIENT

DRUGS (3)
  1. RUXOLITINIB [Suspect]
     Active Substance: RUXOLITINIB
     Indication: Myelofibrosis
     Dosage: 30 MG, QD
     Route: 048
     Dates: start: 20221018
  2. RUXOLITINIB [Suspect]
     Active Substance: RUXOLITINIB
     Dosage: 15 MG, QD
     Route: 048
  3. RUXOLITINIB [Suspect]
     Active Substance: RUXOLITINIB
     Dosage: 15 MG, BID
     Route: 048
     Dates: start: 202210

REACTIONS (30)
  - Back pain [Unknown]
  - Bone pain [Unknown]
  - Injection site bruising [Unknown]
  - COVID-19 [Unknown]
  - Decreased immune responsiveness [Unknown]
  - Visual impairment [Unknown]
  - Dizziness [Unknown]
  - Blindness [Unknown]
  - Muscular weakness [Unknown]
  - Vomiting [Unknown]
  - Influenza [Unknown]
  - Headache [Unknown]
  - Haematocrit decreased [Unknown]
  - Herpes zoster [Unknown]
  - Malaise [Unknown]
  - Pneumonitis [Unknown]
  - Arthralgia [Unknown]
  - Haemoglobin decreased [Unknown]
  - Platelet count decreased [Unknown]
  - Nervousness [Unknown]
  - Pain [Unknown]
  - Incorrect dosage administered [Unknown]
  - Vision blurred [Unknown]
  - Condition aggravated [Unknown]
  - Haemorrhage [Unknown]
  - Blood test abnormal [Unknown]
  - Splenomegaly [Unknown]
  - Fatigue [Unknown]
  - General physical health deterioration [Unknown]
  - Burning sensation [Unknown]

NARRATIVE: CASE EVENT DATE: 20220101
